FAERS Safety Report 12289361 (Version 1)
Quarter: 2016Q2

REPORT INFORMATION
  Report Type: Spontaneous
  Country: US (occurrence: None)
  Receive Date: 20160420
  Receipt Date: 20160420
  Transmission Date: 20160815
  Serious: Yes (Disabling)
  Sender: FDA-Public Use
  Company Number: None

PATIENT
  Age: 51 Year
  Sex: Female
  Weight: 43.09 kg

DRUGS (3)
  1. NEURONTIN [Concomitant]
     Active Substance: GABAPENTIN
  2. CORTICOSTEROID [Suspect]
     Active Substance: CORTICOSTEROID NOS
     Indication: PAIN
     Dosage: GIVEN INTO/UNDER THE SKIN
     Dates: start: 20151120, end: 20151218
  3. MELOXICAM. [Concomitant]
     Active Substance: MELOXICAM

REACTIONS (4)
  - Drug ineffective [None]
  - Injection site reaction [None]
  - Injection site pain [None]
  - Nerve injury [None]

NARRATIVE: CASE EVENT DATE: 20151120
